FAERS Safety Report 5040012-0 (Version None)
Quarter: 2006Q2

REPORT INFORMATION
  Report Type: 
  Country: None (occurrence: None)
  Receive Date: 20060601
  Receipt Date: 20060105
  Transmission Date: 20061013
  Serious: No
  Sender: FDA-Public Use
  Company Number: 2006PV006634

PATIENT
  Age: 55 Year
  Sex: Male
  Weight: 112.0385 kg

DRUGS (5)
  1. BYETTA [Suspect]
     Indication: DIABETES MELLITUS NON-INSULIN-DEPENDENT
     Dosage: SEE IMAGE
     Route: 058
     Dates: start: 20060104, end: 20060111
  2. BYETTA [Suspect]
     Indication: DIABETES MELLITUS NON-INSULIN-DEPENDENT
     Dosage: SEE IMAGE
     Route: 058
     Dates: start: 20060112
  3. NOVOLOG [Suspect]
     Dosage: 6 UNITS
  4. LANTUS [Concomitant]
  5. ACTOPLUS MET [Concomitant]

REACTIONS (8)
  - BLOOD GLUCOSE DECREASED [None]
  - COLD SWEAT [None]
  - DIARRHOEA [None]
  - ERUCTATION [None]
  - FEELING JITTERY [None]
  - NAUSEA [None]
  - NERVOUSNESS [None]
  - STUPOR [None]
